FAERS Safety Report 9224500 (Version 1)
Quarter: 2013Q2

REPORT INFORMATION
  Report Type: Spontaneous
  Country: US (occurrence: None)
  Receive Date: 20130409
  Receipt Date: 20130409
  Transmission Date: 20140414
  Serious: Yes (Hospitalization)
  Sender: FDA-Public Use
  Company Number: None

PATIENT
  Age: 56 Year
  Sex: Male

DRUGS (7)
  1. INCIVEK [Suspect]
     Indication: HEPATITIS C
     Route: 048
     Dates: start: 20130222, end: 20130408
  2. NIFEDIPINE [Suspect]
     Indication: HYPERTENSION
     Route: 048
  3. ARANESP [Concomitant]
  4. NEORAL [Concomitant]
  5. HYDROCORTISONE/LIDOCAINE CREAM [Concomitant]
  6. PEGASYS [Concomitant]
  7. RIBASPHERE [Concomitant]

REACTIONS (2)
  - Hypotension [None]
  - Drug interaction [None]
